FAERS Safety Report 18012819 (Version 1)
Quarter: 2020Q3

REPORT INFORMATION
  Report Type: Spontaneous
  Country: US (occurrence: US)
  Receive Date: 20200711
  Receipt Date: 20200711
  Transmission Date: 20201103
  Serious: Yes (Disabling)
  Sender: FDA-Public Use
  Company Number: None

PATIENT
  Age: 60 Year
  Sex: Female
  Weight: 74.25 kg

DRUGS (1)
  1. MELLOW HAND SANITIZER (ALOE AND VITAMIN E) [Suspect]
     Active Substance: ALCOHOL
     Indication: INFECTION PROPHYLAXIS
     Dosage: ?          QUANTITY:1 PUMP;?
     Route: 061
     Dates: start: 20200705, end: 20200711

REACTIONS (4)
  - Presyncope [None]
  - Palpitations [None]
  - Vision blurred [None]
  - Product odour abnormal [None]

NARRATIVE: CASE EVENT DATE: 20200710
